FAERS Safety Report 9557675 (Version 1)
Quarter: 2013Q3

REPORT INFORMATION
  Report Type: Spontaneous
  Country: US (occurrence: None)
  Receive Date: 20130724
  Receipt Date: 20130724
  Transmission Date: 20140515
  Serious: Yes (Other)
  Sender: FDA-Public Use
  Company Number: PHEH2012US018450

PATIENT
  Age: 71 Year
  Sex: Female
  Weight: 54.3 kg

DRUGS (4)
  1. GLEEVEC (IMATINIB) [Suspect]
     Indication: ACUTE LYMPHOCYTIC LEUKAEMIA
     Route: 048
     Dates: start: 20111205, end: 20120527
  2. LOSARTAN [Suspect]
  3. VALTREX (VALACICLOVIR HYDROCHLORIDE) [Suspect]
  4. FAMOTIDINE [Suspect]

REACTIONS (1)
  - Acute lymphocytic leukaemia [None]
